FAERS Safety Report 19515347 (Version 1)
Quarter: 2021Q3

REPORT INFORMATION
  Report Type: Spontaneous
  Country: US (occurrence: US)
  Receive Date: 20210710
  Receipt Date: 20210710
  Transmission Date: 20211014
  Serious: No
  Sender: FDA-Public Use
  Company Number: US-SA-2021SA221585

PATIENT
  Age: 73 Year
  Sex: Female

DRUGS (1)
  1. TOUJEO [Suspect]
     Active Substance: INSULIN GLARGINE
     Dosage: DRUG STRUCTURE DOSAGE : 16 UNITS DRUG INTERVAL DOSAGE : ONCE DAILY
     Dates: start: 20210604

REACTIONS (1)
  - Product storage error [Unknown]

NARRATIVE: CASE EVENT DATE: 20210604
